FAERS Safety Report 9630715 (Version 1)
Quarter: 2013Q4

REPORT INFORMATION
  Report Type: Spontaneous
  Country: US (occurrence: None)
  Receive Date: 20131015
  Receipt Date: 20131015
  Transmission Date: 20140711
  Serious: Yes (Hospitalization, Other)
  Sender: FDA-Public Use
  Company Number: 2012-002958

PATIENT
  Age: 63 Year
  Sex: Female
  Weight: 66.68 kg

DRUGS (24)
  1. ACTONEL [Suspect]
     Route: 048
     Dates: start: 200305, end: 2005
  2. ACTONEL [Suspect]
     Route: 048
  3. ACTONEL [Suspect]
     Route: 048
     Dates: start: 200007, end: 200008
  4. FOSAMAX (ALENDRONATE SODIUM) [Suspect]
     Route: 048
     Dates: start: 199811, end: 199902
  5. FOSAMAX PLUS D (ALENDRONATE SODIUM, COLECALCIFEROL) [Concomitant]
     Route: 048
     Dates: start: 200812, end: 200905
  6. ALENDRONATE (ALENDRONATE SODIUM) [Suspect]
     Route: 048
     Dates: start: 200805, end: 200811
  7. BONIVA (IBANDRONATE SODIUM) [Suspect]
     Dosage: ONCE MONTHLY
     Route: 048
  8. PLAQUENIL /00072602/ (HYDROXYCHLORIDE PHOSPHATE) [Concomitant]
  9. METHOTREXATE (METHETREXATE) [Concomitant]
  10. MINOCYLINE (MINOCYLINE) [Concomitant]
  11. BABY ASPIRIN (ACETYLSALICYLIC ACID) [Concomitant]
  12. PROPOXYPHENE NAPSYLATE W/PARACETAMOL (DEXTROPROPOXYPHENE NAPSILATE, PARACETAMOL) [Concomitant]
  13. SKELAXIN /00611501/ (METAXALONE) [Concomitant]
  14. VIOXX (ROFECOXIB) [Concomitant]
  15. PEPCID /00706001/ (FAMOTIDINE) [Concomitant]
  16. NEXIUM [Concomitant]
  17. BUSPIRONE (BUSPIRONE) [Concomitant]
  18. ZYRTEC (CETIRIZINE HYDROCHLORIDE) [Concomitant]
  19. SINGULAIR [Concomitant]
  20. ALBUTEROL /00139501/ (SALBUTAMOL) [Concomitant]
  21. NASACORT AQ (TRIAMCINOLONE ACETONIDE) [Concomitant]
  22. FOLIC ACID (FOLIC ACID) [Concomitant]
  23. CALCIUM (CALCIUM) [Concomitant]
  24. VITAMIN D /00318501/ (COLECALCIFEROL) [Concomitant]

REACTIONS (8)
  - Femur fracture [None]
  - Arthralgia [None]
  - Fracture displacement [None]
  - Pathological fracture [None]
  - Fall [None]
  - Pelvic pain [None]
  - Myositis [None]
  - Exostosis [None]
